FAERS Safety Report 5641992-2 (Version None)
Quarter: 2008Q1

REPORT INFORMATION
  Report Type: 
  Country: None (occurrence: None)
  Receive Date: 20080131
  Receipt Date: 20071213
  Transmission Date: 20080703
  Serious: No
  Sender: FDA-Public Use
  Company Number: 163-21880-07120768

PATIENT
  Age: 62 Year
  Sex: Female

DRUGS (2)
  1. REVLIMID [Suspect]
     Indication: MYELODYSPLASTIC SYNDROME
     Dosage: 5 MG, 1 IN 1 D, AURICULAR (OTIC); 10 MG, 1 IN 1 D, AURICULAR (OTIC)
     Route: 001
     Dates: start: 20070423, end: 20070601
  2. REVLIMID [Suspect]
     Indication: MYELODYSPLASTIC SYNDROME
     Dosage: 5 MG, 1 IN 1 D, AURICULAR (OTIC); 10 MG, 1 IN 1 D, AURICULAR (OTIC)
     Route: 001
     Dates: start: 20070619

REACTIONS (1)
  - NASAL CONGESTION [None]
